FAERS Safety Report 12489865 (Version 1)
Quarter: 2016Q2

REPORT INFORMATION
  Report Type: Spontaneous
  Country: DE (occurrence: DE)
  Receive Date: 20160622
  Receipt Date: 20160622
  Transmission Date: 20160815
  Serious: Yes (Congenital Anomaly)
  Sender: FDA-Public Use
  Company Number: DE-TEVA-668198GER

PATIENT
  Age: 0 Day
  Sex: Female

DRUGS (3)
  1. LAMOTRIGIN [Suspect]
     Active Substance: LAMOTRIGINE
     Indication: EPILEPSY
     Dosage: 500 MILLIGRAM DAILY; DOSAGE 200-0-300 MG/D
     Route: 064
     Dates: start: 20150115, end: 20150626
  2. TAVOR (LORAZEPAM) [Concomitant]
     Active Substance: LORAZEPAM
     Indication: EPILEPSY
     Route: 064
  3. TOPIRAMATE. [Suspect]
     Active Substance: TOPIRAMATE
     Indication: EPILEPSY
     Dosage: UNTIL WEEK 10: 50MG/D, FROM WEEK 11: 100MG/D
     Route: 064
     Dates: start: 20150115, end: 20150626

REACTIONS (6)
  - Anomalous pulmonary venous connection [Not Recovered/Not Resolved]
  - Cardiac malposition [Not Recovered/Not Resolved]
  - Persistent left superior vena cava [Not Recovered/Not Resolved]
  - Atrial septal defect [Not Recovered/Not Resolved]
  - Foetal exposure during pregnancy [Unknown]
  - Patent ductus arteriosus [Recovered/Resolved]

NARRATIVE: CASE EVENT DATE: 20151014
